FAERS Safety Report 4732162-0 (Version None)
Quarter: 2005Q3

REPORT INFORMATION
  Report Type: 
  Country: None (occurrence: None)
  Receive Date: 20050725
  Receipt Date: 20020628
  Transmission Date: 20060218
  Serious: Yes (Death)
  Sender: FDA-Public Use
  Company Number: USA-2002-0001527

PATIENT
  Age: 40 Year
  Sex: Male
  Weight: 65.8 kg

DRUGS (10)
  1. MORPHINE SULFATE [Suspect]
     Route: 065
  2. OXYCODONE HCL [Suspect]
     Route: 065
  3. COCAINE (COCAINE) [Suspect]
     Route: 065
  4. METHADON HCL TAB [Suspect]
     Route: 065
  5. ALCOHOL (ETHANOL) [Suspect]
     Route: 065
  6. PROPOXYPHENE HCL [Suspect]
     Route: 065
  7. AMITRIPTYLINE HCL [Suspect]
     Route: 065
  8. CARISOPRODOL [Suspect]
     Route: 065
  9. DEXTROMETHORPHAN HYDROBROMIDE [Suspect]
     Route: 065
  10. DIAZEPAM [Suspect]
     Route: 065

REACTIONS (2)
  - ACCIDENTAL OVERDOSE [None]
  - MULTIPLE DRUG OVERDOSE [None]
